FAERS Safety Report 8559479-6 (Version None)
Quarter: 2012Q3

REPORT INFORMATION
  Report Type: 
  Country: None (occurrence: None)
  Receive Date: 20120802
  Receipt Date: 20120725
  Transmission Date: 20120928
  Serious: Yes (Hospitalization)
  Sender: FDA-Public Use
  Company Number: MX-SANOFI-AVENTIS-2012SA047804

PATIENT
  Age: 73 Year
  Sex: Female
  Weight: 62 kg

DRUGS (3)
  1. LANTUS [Suspect]
     Indication: TYPE 2 DIABETES MELLITUS
     Dosage: DOSE-NOT SPECIFIED, IT DEPENDS ON THE PATIENT'S GLUCOSE LEVELS
     Route: 058
     Dates: start: 20100101
  2. ANTIHYPERTENSIVES [Concomitant]
     Route: 048
     Dates: start: 20100101
  3. AMARYL [Suspect]
     Indication: TYPE 2 DIABETES MELLITUS
     Route: 048
     Dates: start: 20100101

REACTIONS (2)
  - HYPERGLYCAEMIA [None]
  - EYE DISORDER [None]
